FAERS Safety Report 13117312 (Version 7)
Quarter: 2019Q3

REPORT INFORMATION
  Report Type: Spontaneous
  Country: US (occurrence: US)
  Receive Date: 20170116
  Receipt Date: 20190807
  Transmission Date: 20191004
  Serious: Yes (Hospitalization, Other)
  Sender: FDA-Public Use
  Company Number: US-DSJP-DSU-2016-124830

PATIENT

DRUGS (8)
  1. BENICAR [Suspect]
     Active Substance: OLMESARTAN MEDOXOMIL
     Dosage: 20 MG, QD
     Route: 048
     Dates: end: 20150513
  2. TIZANIDINE. [Concomitant]
     Active Substance: TIZANIDINE
     Indication: PRODUCT USED FOR UNKNOWN INDICATION
     Dosage: UNK
  3. BENICAR [Suspect]
     Active Substance: OLMESARTAN MEDOXOMIL
     Indication: HYPERTENSION
     Dosage: 40 MG, QD
     Route: 048
     Dates: start: 20090601, end: 2016
  4. BENICAR [Suspect]
     Active Substance: OLMESARTAN MEDOXOMIL
     Dosage: 20 MG, QD
     Route: 048
     Dates: start: 20150519
  5. SPIRONOLACTONE. [Concomitant]
     Active Substance: SPIRONOLACTONE
     Indication: PRODUCT USED FOR UNKNOWN INDICATION
     Dosage: UNK
  6. TRAMADOL. [Concomitant]
     Active Substance: TRAMADOL
     Indication: PRODUCT USED FOR UNKNOWN INDICATION
     Dosage: UNK
  7. VITAMINS                           /00067501/ [Concomitant]
     Active Substance: VITAMINS
     Indication: PRODUCT USED FOR UNKNOWN INDICATION
     Dosage: UNK
  8. CRESTOR [Concomitant]
     Active Substance: ROSUVASTATIN CALCIUM
     Indication: PRODUCT USED FOR UNKNOWN INDICATION
     Dosage: UNK

REACTIONS (17)
  - Gastric ulcer [Recovered/Resolved]
  - Colitis ulcerative [Unknown]
  - Haemorrhoids [Unknown]
  - Rectal polyp [Recovered/Resolved]
  - Syncope [Unknown]
  - Sprue-like enteropathy [Recovering/Resolving]
  - Campylobacter colitis [Unknown]
  - Gallbladder disorder [Unknown]
  - Gastrointestinal haemorrhage [Recovering/Resolving]
  - Diverticulum intestinal [Unknown]
  - Oesophagitis [Unknown]
  - Erosive duodenitis [Unknown]
  - Septic shock [Recovering/Resolving]
  - Helicobacter gastritis [Unknown]
  - Acute kidney injury [Unknown]
  - Gastroenteritis bacterial [Unknown]
  - Duodenal polyp [Recovered/Resolved]

NARRATIVE: CASE EVENT DATE: 20150509
